FAERS Safety Report 24175086 (Version 1)
Quarter: 2024Q3

REPORT INFORMATION
  Report Type: Spontaneous
  Country: IT (occurrence: IT)
  Receive Date: 20240805
  Receipt Date: 20240805
  Transmission Date: 20241017
  Serious: Yes (Death, Life-Threatening)
  Sender: FRESENIUS KABI
  Company Number: IT-FreseniusKabi-FK202411975

PATIENT
  Age: 30 Year
  Sex: Female

DRUGS (2)
  1. INTRALIPID [Suspect]
     Active Substance: EGG PHOSPHOLIPIDS\GLYCERIN\SOYBEAN OIL
     Indication: Toxicity to various agents
     Dosage: (90 ML IN 2 MIN)?ROUTE OF ADMINISTRATION: INTRAVENOUS BOLUS
  2. INTRALIPID [Suspect]
     Active Substance: EGG PHOSPHOLIPIDS\GLYCERIN\SOYBEAN OIL
     Dosage: CONTINUOUS INFUSION (1500 ML/H)
     Route: 042

REACTIONS (3)
  - Fat overload syndrome [Fatal]
  - Accidental overdose [Unknown]
  - Off label use [Unknown]
